FAERS Safety Report 18974369 (Version 4)
Quarter: 2021Q3

REPORT INFORMATION
  Report Type: Other
  Country: CA (occurrence: CA)
  Receive Date: 20210305
  Receipt Date: 20210811
  Transmission Date: 20211014
  Serious: No
  Sender: FDA-Public Use
  Company Number: CA-ROCHE-2508738

PATIENT
  Age: 52 Year
  Sex: Female

DRUGS (3)
  1. OCREVUS [Suspect]
     Active Substance: OCRELIZUMAB
     Indication: RELAPSING-REMITTING MULTIPLE SCLEROSIS
     Dosage: 300 MG AT DAY 0 AND 14, THEN 600 MG EVERY 6 MONTH
     Route: 042
     Dates: start: 20190822
  2. IMITREX [Concomitant]
     Active Substance: SUMATRIPTAN SUCCINATE
  3. PANTOLOC [Concomitant]
     Active Substance: PANTOPRAZOLE SODIUM

REACTIONS (6)
  - Bone pain [Recovered/Resolved]
  - Nasopharyngitis [Recovering/Resolving]
  - Fatigue [Not Recovered/Not Resolved]
  - Influenza [Recovering/Resolving]
  - Asthenia [Recovering/Resolving]
  - Limb discomfort [Recovered/Resolved]

NARRATIVE: CASE EVENT DATE: 201909
